FAERS Safety Report 12265655 (Version 1)
Quarter: 2016Q2

REPORT INFORMATION
  Report Type: Not Available
  Country: US (occurrence: US)
  Receive Date: 20160413
  Receipt Date: 20160413
  Transmission Date: 20160815
  Serious: No
  Sender: FDA-Public Use
  Company Number: US-HISAMITSU-2016-US-000021

PATIENT
  Age: 75 Year
  Sex: Female
  Weight: 81.65 kg

DRUGS (3)
  1. SIMVASTATIN. [Concomitant]
     Active Substance: SIMVASTATIN
  2. LISINOPRIL. [Concomitant]
     Active Substance: LISINOPRIL
  3. SALONPAS ARTHRITIS PAIN [Suspect]
     Active Substance: MENTHOL\METHYL SALICYLATE
     Dosage: 2 PATCHES
     Route: 061
     Dates: start: 20160101, end: 20160101

REACTIONS (1)
  - Application site pain [Recovered/Resolved]

NARRATIVE: CASE EVENT DATE: 20160101
